FAERS Safety Report 16080021 (Version 4)
Quarter: 2019Q2

REPORT INFORMATION
  Report Type: Spontaneous
  Country: US (occurrence: US)
  Receive Date: 20190315
  Receipt Date: 20190528
  Transmission Date: 20190711
  Serious: Yes (Hospitalization)
  Sender: FDA-Public Use
  Company Number: US-ACTELION-A-NJ2019-186536

PATIENT
  Age: 63 Year
  Sex: Male
  Weight: 60.77 kg

DRUGS (6)
  1. UPTRAVI [Suspect]
     Active Substance: SELEXIPAG
     Dosage: 400 MCG, BID
     Route: 048
  2. UPTRAVI [Suspect]
     Active Substance: SELEXIPAG
     Dosage: 600 MCG, BID
     Route: 048
  3. UPTRAVI [Suspect]
     Active Substance: SELEXIPAG
     Dosage: 200 MCG, BID
     Route: 048
     Dates: start: 20190207
  4. REVATIO [Concomitant]
     Active Substance: SILDENAFIL CITRATE
  5. UPTRAVI [Suspect]
     Active Substance: SELEXIPAG
     Indication: PULMONARY ARTERIAL HYPERTENSION
     Dosage: 800 MCG, BID
     Route: 048
  6. UPTRAVI [Suspect]
     Active Substance: SELEXIPAG
     Dosage: 1000 MCG, BID
     Route: 048

REACTIONS (22)
  - Decreased appetite [Unknown]
  - Femur fracture [Unknown]
  - Syncope [Unknown]
  - Insomnia [Unknown]
  - Nausea [Unknown]
  - Dyspnoea [Unknown]
  - Gait disturbance [Unknown]
  - Vomiting [Unknown]
  - Arthralgia [Unknown]
  - Pneumonia [Unknown]
  - Wheezing [Unknown]
  - Abdominal discomfort [Unknown]
  - Back pain [Recovering/Resolving]
  - Myalgia [Unknown]
  - Hospitalisation [Unknown]
  - Ageusia [Unknown]
  - Pain in extremity [Unknown]
  - Diarrhoea [Unknown]
  - Abdominal distension [Unknown]
  - Pain in jaw [Unknown]
  - Neck pain [Recovering/Resolving]
  - Headache [Unknown]

NARRATIVE: CASE EVENT DATE: 201902
